FAERS Safety Report 6806999-8 (Version None)
Quarter: 2010Q2

REPORT INFORMATION
  Report Type: 
  Country: None (occurrence: None)
  Receive Date: 20100629
  Receipt Date: 20080627
  Transmission Date: 20101027
  Serious: No
  Sender: FDA-Public Use
  Company Number: US-PFIZER INC-2008042194

PATIENT
  Sex: Female
  Weight: 61.23 kg

DRUGS (4)
  1. TIKOSYN [Suspect]
     Indication: ATRIAL FIBRILLATION
     Route: 048
     Dates: start: 20000101
  2. TOPROL-XL [Concomitant]
     Indication: ARRHYTHMIA
  3. LIPITOR [Concomitant]
     Indication: BLOOD CHOLESTEROL INCREASED
  4. MIDODRINE HYDROCHLORIDE [Concomitant]

REACTIONS (1)
  - ARTHRITIS [None]
